FAERS Safety Report 9146565 (Version 1)
Quarter: 2013Q1

REPORT INFORMATION
  Report Type: Spontaneous
  Country: HU (occurrence: HU)
  Receive Date: 20130307
  Receipt Date: 20130307
  Transmission Date: 20140127
  Serious: Yes (Other)
  Sender: FDA-Public Use
  Company Number: HU-JNJFOC-20130300087

PATIENT
  Age: 28 Year
  Sex: Female
  Weight: 60 kg

DRUGS (5)
  1. REMICADE [Suspect]
     Indication: CROHN^S DISEASE
     Dosage: INDUCTION DOSE
     Route: 042
     Dates: start: 20130213, end: 20130226
  2. PENTASA [Concomitant]
     Route: 048
     Dates: start: 2005
  3. IMURAN [Concomitant]
     Route: 048
     Dates: start: 2013
  4. MODULEN [Concomitant]
     Route: 048
     Dates: start: 2012
  5. MALTOFER [Concomitant]
     Route: 048
     Dates: start: 2005

REACTIONS (5)
  - Chest discomfort [Recovered/Resolved]
  - Hypotension [Recovered/Resolved]
  - Dermatitis allergic [Recovered/Resolved]
  - Hypotonia [Recovered/Resolved]
  - Infusion related reaction [Recovered/Resolved]
